FAERS Safety Report 23626171 (Version 1)
Quarter: 2024Q1

REPORT INFORMATION
  Report Type: Spontaneous
  Country: FR (occurrence: FR)
  Receive Date: 20240313
  Receipt Date: 20240313
  Transmission Date: 20240410
  Serious: Yes (Other)
  Sender: FDA-Public Use
  Company Number: FR-B.Braun Medical Inc.-2154309

PATIENT
  Age: 84 Year
  Sex: Female
  Weight: 50 kg

DRUGS (12)
  1. ACETAMINOPHEN [Suspect]
     Active Substance: ACETAMINOPHEN
     Route: 042
  2. TRAMADOL [Suspect]
     Active Substance: TRAMADOL\TRAMADOL HYDROCHLORIDE
  3. Oftamac plus [Concomitant]
  4. ASPIRIN [Concomitant]
     Active Substance: ASPIRIN
  5. BISOPROLOL. [Concomitant]
     Active Substance: BISOPROLOL FUMARATE
  6. LYRICA [Concomitant]
     Active Substance: PREGABALIN
  7. Artelac (Hypromellose) [Concomitant]
  8. ELIQUIS [Concomitant]
     Active Substance: APIXABAN
  9. VALSARTAN [Concomitant]
     Active Substance: VALSARTAN
  10. FLECAINIDE [Suspect]
     Active Substance: FLECAINIDE
  11. IBRANCE [Suspect]
     Active Substance: PALBOCICLIB
  12. FEMARA [Suspect]
     Active Substance: LETROZOLE

REACTIONS (11)
  - Abdominal pain [Recovered/Resolved]
  - Musculoskeletal disorder [Recovered/Resolved]
  - Nausea [Recovering/Resolving]
  - Dyspnoea exertional [Recovered/Resolved]
  - Balance disorder [Recovered/Resolved]
  - Fall [Recovered/Resolved]
  - Limb injury [Recovering/Resolving]
  - Arrhythmia [Unknown]
  - Spinal fracture [Not Recovered/Not Resolved]
  - Femoral neck fracture [Recovering/Resolving]
  - Obstruction [Recovered/Resolved]
